FAERS Safety Report 17991389 (Version 1)
Quarter: 2020Q3

REPORT INFORMATION
  Report Type: Report from Study
  Country: BR (occurrence: BR)
  Receive Date: 20200707
  Receipt Date: 20200707
  Transmission Date: 20201103
  Serious: Yes (Disabling, Other)
  Sender: FDA-Public Use
  Company Number: NVSC2020BR190000

PATIENT
  Age: 74 Year
  Sex: Male

DRUGS (2)
  1. ENTRESTO [Suspect]
     Active Substance: SACUBITRIL\VALSARTAN
     Indication: CARDIAC FAILURE
     Dosage: 0.5 DF, BID (APPROX. 2 OR 3 YEARS)
     Route: 065
  2. FUROSEMIDE. [Concomitant]
     Active Substance: FUROSEMIDE
     Indication: DIURETIC THERAPY
     Dosage: UNK
     Route: 065

REACTIONS (9)
  - Visual impairment [Not Recovered/Not Resolved]
  - Sneezing [Unknown]
  - Feeling cold [Not Recovered/Not Resolved]
  - Rhinitis [Not Recovered/Not Resolved]
  - Age-related macular degeneration [Not Recovered/Not Resolved]
  - Influenza [Not Recovered/Not Resolved]
  - Vision blurred [Not Recovered/Not Resolved]
  - Hypoacusis [Not Recovered/Not Resolved]
  - Wrong technique in product usage process [Not Recovered/Not Resolved]

NARRATIVE: CASE EVENT DATE: 2020
